FAERS Safety Report 5529076-5 (Version None)
Quarter: 2007Q4

REPORT INFORMATION
  Report Type: 
  Country: None (occurrence: None)
  Receive Date: 20071129
  Receipt Date: 20061108
  Transmission Date: 20080405
  Serious: No
  Sender: FDA-Public Use
  Company Number: A0626717A

PATIENT
  Age: 66 Year
  Sex: Female

DRUGS (3)
  1. WELLBUTRIN SR [Suspect]
     Indication: DEPRESSION
     Dosage: 200MG PER DAY
     Route: 048
     Dates: start: 20060926
  2. EFFEXOR XR [Concomitant]
  3. LITHIUM CARBONATE [Concomitant]

REACTIONS (1)
  - DRUG INEFFECTIVE [None]
